FAERS Safety Report 20886170 (Version 9)
Quarter: 2023Q1

REPORT INFORMATION
  Report Type: Report from Study
  Country: US (occurrence: US)
  Receive Date: 20220527
  Receipt Date: 20230208
  Transmission Date: 20230418
  Serious: No
  Sender: FDA-Public Use
  Company Number: US-NOVARTISTESTPH-NVSC2022US122185

PATIENT
  Age: 41 Year
  Sex: Female

DRUGS (1)
  1. COSENTYX [Suspect]
     Active Substance: SECUKINUMAB
     Indication: Psoriasis
     Dosage: UNK
     Route: 065

REACTIONS (7)
  - Fear of injection [Unknown]
  - Nausea [Unknown]
  - Hyperventilation [Unknown]
  - Injection site pain [Unknown]
  - Skin plaque [Unknown]
  - COVID-19 [Unknown]
  - Product administered at inappropriate site [Unknown]
